FAERS Safety Report 25143001 (Version 2)
Quarter: 2025Q2

REPORT INFORMATION
  Report Type: Spontaneous
  Country: JP (occurrence: JP)
  Receive Date: 20250401
  Receipt Date: 20250522
  Transmission Date: 20250717
  Serious: Yes (Other)
  Sender: BRISTOL-MYERS SQUIBB COMPANY
  Company Number: JP-ONO-2024JP026047

PATIENT
  Age: 76 Year
  Sex: Male
  Weight: 49 kg

DRUGS (2)
  1. OPDIVO [Suspect]
     Active Substance: NIVOLUMAB
     Indication: Pleural mesothelioma malignant
     Route: 041
     Dates: start: 20241206, end: 20241206
  2. SODIUM CHLORIDE [Concomitant]
     Active Substance: SODIUM CHLORIDE
     Indication: Product used for unknown indication
     Route: 042
     Dates: start: 20241206, end: 20241206

REACTIONS (3)
  - Infusion related reaction [Recovered/Resolved]
  - Lymphocyte count decreased [Recovered/Resolved]
  - Pneumonia bacterial [Unknown]

NARRATIVE: CASE EVENT DATE: 20241206
